FAERS Safety Report 8128058-7 (Version None)
Quarter: 2011Q4

REPORT INFORMATION
  Report Type: 
  Country: None (occurrence: None)
  Receive Date: 20111230
  Receipt Date: 20111114
  Transmission Date: 20120403
  Serious: Yes (Other)
  Sender: FDA-Public Use
  Company Number: 307009USA

PATIENT
  Age: 61 Year
  Sex: Male
  Weight: 73.0291 kg

DRUGS (8)
  1. BONE UP JARROW: CALCIUM, BORON, GLUCOSAMINE HCL, VITAMIN D [Concomitant]
  2. PROGESTA CARE [Concomitant]
  3. VENLAFAXINE [Suspect]
     Indication: INSOMNIA
     Dosage: 150 MG (150 MG, 1 IN 1 D), ORAL
     Route: 048
     Dates: start: 20110801, end: 20110101
  4. VENLAFAXINE [Suspect]
     Indication: DEPRESSION
     Dosage: 150 MG (150 MG, 1 IN 1 D), ORAL
     Route: 048
     Dates: start: 20110801, end: 20110101
  5. VENLAFAXINE [Suspect]
     Indication: DEPRESSION
     Dosage: 150 (150 MG, 1 IN 1 D), ORAL
     Route: 048
     Dates: start: 20110101
  6. VENLAFAXINE [Suspect]
     Indication: INSOMNIA
     Dosage: 150 (150 MG, 1 IN 1 D), ORAL
     Route: 048
     Dates: start: 20110101
  7. MULTI-VITAMIN [Concomitant]
  8. AMITRIPTYLINE HCL [Concomitant]

REACTIONS (1)
  - BRAIN NEOPLASM [None]
